FAERS Safety Report 5320760-5 (Version None)
Quarter: 2007Q2

REPORT INFORMATION
  Report Type: 
  Country: None (occurrence: None)
  Receive Date: 20070424
  Receipt Date: 20070416
  Transmission Date: 20071010
  Serious: Yes (Hospitalization)
  Sender: FDA-Public Use
  Company Number: AEGBR200700070

PATIENT
  Sex: Male

DRUGS (1)
  1. GAMUNEX [Suspect]

REACTIONS (2)
  - HAEMOLYSIS [None]
  - SPLENOMEGALY [None]
